FAERS Safety Report 22648117 (Version 1)
Quarter: 2023Q2

REPORT INFORMATION
  Report Type: Report from Study
  Country: US (occurrence: US)
  Receive Date: 20230628
  Receipt Date: 20230628
  Transmission Date: 20230721
  Serious: Yes (Hospitalization, Other)
  Sender: FDA-Public Use
  Company Number: US-TAKEDA-US201721506

PATIENT
  Sex: Female

DRUGS (2)
  1. HUMAN IMMUNOGLOBULIN G [Suspect]
     Active Substance: HUMAN IMMUNOGLOBULIN G
     Indication: Primary immunodeficiency syndrome
     Dosage: 12 GRAM, Q2WEEKS
     Route: 065
  2. COVID-19 VACCINE NOS [Suspect]
     Active Substance: COVID-19 VACCINE NOS
     Indication: Product used for unknown indication
     Dosage: UNK
     Route: 065

REACTIONS (13)
  - Pneumonia [Unknown]
  - Septic shock [Unknown]
  - Restless legs syndrome [Unknown]
  - Abdominal distension [Unknown]
  - Pain [Unknown]
  - Fatigue [Unknown]
  - Fall [Unknown]
  - Cholelithiasis [Unknown]
  - Hiatus hernia [Unknown]
  - Feeling abnormal [Unknown]
  - Rash [Unknown]
  - Pyrexia [Unknown]
  - Inappropriate schedule of product administration [Unknown]
